FAERS Safety Report 9995446 (Version 2)
Quarter: 2014Q2

REPORT INFORMATION
  Report Type: Spontaneous
  Country: OM (occurrence: OM)
  Receive Date: 20140311
  Receipt Date: 20140607
  Transmission Date: 20141212
  Serious: Yes (Other)
  Sender: FDA-Public Use
  Company Number: PHHY2014OM028961

PATIENT
  Age: 56 Year
  Sex: Female

DRUGS (2)
  1. TASIGNA [Suspect]
     Indication: CHRONIC MYELOID LEUKAEMIA
     Dosage: 300 MG, BID
     Route: 048
     Dates: start: 20120804, end: 20130716
  2. TASIGNA [Suspect]
     Dosage: 150 MG, BID
     Route: 048

REACTIONS (1)
  - Hepatic enzyme increased [Recovered/Resolved]
